FAERS Safety Report 9745625 (Version 1)
Quarter: 2013Q4

REPORT INFORMATION
  Report Type: Spontaneous
  Country: US (occurrence: None)
  Receive Date: 20131205
  Receipt Date: 20131205
  Transmission Date: 20140711
  Serious: No
  Sender: FDA-Public Use
  Company Number: None

PATIENT
  Sex: Male
  Weight: 73.4 kg

DRUGS (2)
  1. BUMEX [Suspect]
     Indication: FLUID RETENTION
     Route: 042
     Dates: start: 20131201, end: 20131202
  2. BUMEX [Suspect]
     Indication: CARDIAC FAILURE CONGESTIVE
     Route: 042
     Dates: start: 20131201, end: 20131202

REACTIONS (2)
  - Myalgia [None]
  - Arthralgia [None]
